FAERS Safety Report 5598617-4 (Version None)
Quarter: 2008Q1

REPORT INFORMATION
  Report Type: 
  Country: None (occurrence: None)
  Receive Date: 20080122
  Receipt Date: 20070815
  Transmission Date: 20080703
  Serious: No
  Sender: FDA-Public Use
  Company Number: US-BAUSCH-2007BL002880

PATIENT
  Age: 59 Year
  Sex: Female

DRUGS (5)
  1. DESMOPRESSIN ACETATE [Suspect]
     Indication: DIABETES INSIPIDUS
     Route: 045
  2. DESMOPRESSIN ACETATE [Suspect]
     Route: 045
     Dates: start: 20070725, end: 20070801
  3. GLUCOPHAGE [Concomitant]
     Indication: DIABETES INSIPIDUS
  4. AMARYL [Concomitant]
     Indication: DIABETES INSIPIDUS
  5. HYDROCORTISONE [Concomitant]

REACTIONS (3)
  - DRUG EFFECT DECREASED [None]
  - DRY MOUTH [None]
  - THIRST [None]
